FAERS Safety Report 10530918 (Version 1)
Quarter: 2014Q4

REPORT INFORMATION
  Report Type: Report from Study
  Country: BR (occurrence: BR)
  Receive Date: 20141021
  Receipt Date: 20141021
  Transmission Date: 20150528
  Serious: Yes (Other)
  Sender: FDA-Public Use
  Company Number: BR-GLAXOSMITHKLINE-BR2014GSK004717

PATIENT
  Sex: Male
  Weight: 61 kg

DRUGS (6)
  1. EUTHYROX (LEVOTHYROXINE) [Concomitant]
     Dosage: 1 UNK, QD
     Route: 048
  2. XARELTO [Concomitant]
     Active Substance: RIVAROXABAN
     Dosage: 1 UNK, QD
     Route: 048
     Dates: start: 20140308
  3. ANCORON [Concomitant]
     Active Substance: AMIODARONE HYDROCHLORIDE
     Route: 048
  4. ATENOLOL. [Concomitant]
     Active Substance: ATENOLOL
     Dosage: 1 UNK, QD
     Route: 048
  5. DUTASTERIDE. [Suspect]
     Active Substance: DUTASTERIDE
     Indication: PROSTATOMEGALY
     Dosage: 1 DF, QD
     Route: 048
  6. LOSARTAN POTASSIUM. [Concomitant]
     Active Substance: LOSARTAN POTASSIUM
     Dosage: 1 UNK, BID
     Route: 048

REACTIONS (10)
  - Cardiac disorder [Not Recovered/Not Resolved]
  - Gastroenteritis rotavirus [Recovering/Resolving]
  - Platelet count decreased [Not Recovered/Not Resolved]
  - Cardiac pacemaker insertion [Unknown]
  - Nausea [Recovered/Resolved]
  - Off label use [Recovered/Resolved]
  - Arrhythmia [Unknown]
  - Dysgeusia [Recovered/Resolved]
  - Vomiting [Recovered/Resolved]
  - Diarrhoea [Recovered/Resolved]
